FAERS Safety Report 9980473 (Version 1)
Quarter: 2014Q1

REPORT INFORMATION
  Report Type: Spontaneous
  Country: JP (occurrence: JP)
  Receive Date: 20140307
  Receipt Date: 20140307
  Transmission Date: 20141002
  Serious: Yes (Other)
  Sender: FDA-Public Use
  Company Number: 2014SP001161

PATIENT
  Age: 44 Year
  Sex: Male

DRUGS (6)
  1. CISPLATIN [Suspect]
     Indication: MALIGNANT MELANOMA
  2. DACARBAZINE [Suspect]
     Indication: MALIGNANT MELANOMA
  3. DACARBAZINE [Suspect]
     Indication: MALIGNANT MELANOMA
  4. NIMUSTINE HYDROCHLORIDE [Suspect]
     Indication: MALIGNANT MELANOMA
  5. NIMUSTINE HYDROCHLORIDE [Suspect]
     Indication: MALIGNANT MELANOMA
  6. VINCRISTINE [Suspect]
     Indication: MALIGNANT MELANOMA

REACTIONS (3)
  - Second primary malignancy [Unknown]
  - Myelodysplastic syndrome [Unknown]
  - Fatigue [Unknown]
